FAERS Safety Report 4383395-7 (Version None)
Quarter: 2004Q2

REPORT INFORMATION
  Report Type: 
  Country: None (occurrence: None)
  Receive Date: 20040618
  Receipt Date: 20040607
  Transmission Date: 20050107
  Serious: Yes (Hospitalization)
  Sender: FDA-Public Use
  Company Number: 04H-167-0263177-00

PATIENT

DRUGS (2)
  1. LEUCOVORIN CALCIUM [Suspect]
     Indication: CHEMOTHERAPY
     Dosage: 45 MG, ONCE A WEEK OVER 5 MINUTES, INTRAVENOUS
     Route: 042
  2. FLUOROURACIL [Suspect]
     Indication: CHEMOTHERAPY
     Dosage: 425 MG/M2, ONCE A WEEK OVER 5 MINUTES, INTRAVENOUS
     Route: 042

REACTIONS (1)
  - FEBRILE NEUTROPENIA [None]
